FAERS Safety Report 18681184 (Version 1)
Quarter: 2020Q4

REPORT INFORMATION
  Report Type: Report from Study
  Country: US (occurrence: US)
  Receive Date: 20201229
  Receipt Date: 20201229
  Transmission Date: 20210114
  Serious: No
  Sender: FDA-Public Use
  Company Number: US-CLOVIS ONCOLOGY-CLO-2020-002103

PATIENT
  Age: 71 Year
  Sex: Female

DRUGS (3)
  1. WARFARIN [Suspect]
     Active Substance: WARFARIN
     Indication: PRODUCT USED FOR UNKNOWN INDICATION
     Dosage: ALTERNATING 1 PILL WITH 2 PILLS QOD
  2. RUBRACA [Suspect]
     Active Substance: RUCAPARIB CAMSYLATE
     Indication: OVARIAN CANCER
     Dosage: 600 MG, BID
     Route: 048
     Dates: start: 20201022
  3. WARFARIN [Suspect]
     Active Substance: WARFARIN
     Dosage: 1 PILL QD

REACTIONS (9)
  - Headache [Unknown]
  - Abdominal pain upper [Unknown]
  - International normalised ratio increased [Recovering/Resolving]
  - Flatulence [Unknown]
  - Nausea [Unknown]
  - Abdominal pain [Unknown]
  - Bladder pain [Unknown]
  - Abdominal distension [Unknown]
  - Labelled drug-drug interaction issue [Unknown]

NARRATIVE: CASE EVENT DATE: 202011
